FAERS Safety Report 4472920-3 (Version None)
Quarter: 2004Q4

REPORT INFORMATION
  Report Type: 
  Country: None (occurrence: None)
  Receive Date: 20041012
  Receipt Date: 20041012
  Transmission Date: 20050328
  Serious: Yes (Hospitalization)
  Sender: FDA-Public Use
  Company Number: None

PATIENT
  Age: 80 Year
  Sex: Male
  Weight: 56.7 kg

DRUGS (2)
  1. LISINOPRIL [Suspect]
     Indication: DIABETES MELLITUS NON-INSULIN-DEPENDENT
     Dosage: 10MG, 10 MG QD, ORAL
     Route: 048
     Dates: start: 20040915, end: 20040916
  2. LISINOPRIL [Suspect]
     Indication: HYPERTENSION
     Dosage: 10MG, 10 MG QD, ORAL
     Route: 048
     Dates: start: 20040915, end: 20040916

REACTIONS (1)
  - ANGIONEUROTIC OEDEMA [None]
